FAERS Safety Report 6730606-6 (Version None)
Quarter: 2010Q2

REPORT INFORMATION
  Report Type: 
  Country: None (occurrence: None)
  Receive Date: 20100513
  Receipt Date: 20100430
  Transmission Date: 20101027
  Serious: Yes (Other)
  Sender: FDA-Public Use
  Company Number: DSU-2010-01779

PATIENT
  Age: 96 Year
  Sex: Female
  Weight: 47.6277 kg

DRUGS (3)
  1. BENICAR [Suspect]
     Indication: HYPERTENSION
     Dosage: 10 MG (10 MG, 1/2 X 20 MG QD, PER ORAL
     Route: 048
     Dates: start: 20100301
  2. NEXIUM [Concomitant]
  3. ARIMIDEX (ANASTROZOLE) (ANASTROZOLE) [Concomitant]

REACTIONS (4)
  - DRUG PRESCRIBING ERROR [None]
  - HIP FRACTURE [None]
  - SPINAL DISORDER [None]
  - WRONG TECHNIQUE IN DRUG USAGE PROCESS [None]
